FAERS Safety Report 12961048 (Version 6)
Quarter: 2018Q1

REPORT INFORMATION
  Report Type: Report from Study
  Country: US (occurrence: US)
  Receive Date: 20161121
  Receipt Date: 20180215
  Transmission Date: 20180508
  Serious: Yes (Hospitalization, Other)
  Sender: FDA-Public Use
  Company Number: PHEH2016US030048

PATIENT
  Sex: Male

DRUGS (4)
  1. TASIGNA [Suspect]
     Active Substance: NILOTINIB
     Dosage: 200 MG, BID
     Route: 048
  2. TASIGNA [Suspect]
     Active Substance: NILOTINIB
     Dosage: UNK
     Route: 065
     Dates: start: 20170407
  3. TASIGNA [Suspect]
     Active Substance: NILOTINIB
     Indication: NEOPLASM MALIGNANT
     Dosage: UNK
     Route: 065
  4. TASIGNA [Suspect]
     Active Substance: NILOTINIB
     Dosage: 200 MG, BID (2 CAPSULE TWICE A DAY, ONCE AT 7AM AND ONCE AT 7PM )
     Route: 065

REACTIONS (2)
  - Neuropathic arthropathy [Recovering/Resolving]
  - Ankle fracture [Recovering/Resolving]
